FAERS Safety Report 5853374-9 (Version None)
Quarter: 2008Q3

REPORT INFORMATION
  Report Type: 
  Country: None (occurrence: None)
  Receive Date: 20080821
  Receipt Date: 20080813
  Transmission Date: 20090109
  Serious: Yes (Hospitalization, Other)
  Sender: FDA-Public Use
  Company Number: AU-PFIZER INC-2008063172

PATIENT
  Sex: Female
  Weight: 98 kg

DRUGS (7)
  1. CHANTIX [Suspect]
     Indication: SMOKING CESSATION THERAPY
     Route: 048
     Dates: start: 20080611, end: 20080614
  2. EFFEXOR XR [Concomitant]
     Route: 048
  3. LITHIUM CARBONATE [Concomitant]
     Route: 048
  4. RISPERDAL [Concomitant]
     Route: 030
  5. ZYPREXA [Concomitant]
     Route: 048
  6. RABEPRAZOLE SODIUM [Concomitant]
     Route: 048
  7. ANTIDEPRESSANTS [Concomitant]

REACTIONS (3)
  - PARANOIA [None]
  - SCHIZOPHRENIA [None]
  - SUICIDAL IDEATION [None]
